FAERS Safety Report 20655948 (Version 3)
Quarter: 2022Q2

REPORT INFORMATION
  Report Type: Spontaneous
  Country: US (occurrence: US)
  Receive Date: 20220330
  Receipt Date: 20220529
  Transmission Date: 20220721
  Serious: No
  Sender: FDA-Public Use
  Company Number: US-AMGEN-USASP2022052816

PATIENT
  Age: 72 Year
  Sex: Female

DRUGS (2)
  1. REPATHA [Suspect]
     Active Substance: EVOLOCUMAB
     Indication: Blood cholesterol abnormal
     Dosage: 420 MILLIGRAM, QMO
     Route: 065
     Dates: start: 202111
  2. REPATHA [Suspect]
     Active Substance: EVOLOCUMAB
     Dosage: 420 UNK
     Route: 065

REACTIONS (4)
  - Wrong technique in product usage process [Unknown]
  - Injection site mass [Unknown]
  - Surgery [Unknown]
  - Injection site pain [Unknown]

NARRATIVE: CASE EVENT DATE: 20220323
